FAERS Safety Report 7700423-9 (Version None)
Quarter: 2011Q3

REPORT INFORMATION
  Report Type: 
  Country: None (occurrence: None)
  Receive Date: 20110822
  Receipt Date: 20110817
  Transmission Date: 20111222
  Serious: Yes (Death, Life-Threatening, Hospitalization, Disabling)
  Sender: FDA-Public Use
  Company Number: JP-ASTRAZENECA-2011SE44489

PATIENT
  Age: 30322 Day
  Sex: Male
  Weight: 41.9 kg

DRUGS (18)
  1. MUCOSTA [Concomitant]
     Route: 048
     Dates: end: 20110727
  2. BETAMETHASONE [Concomitant]
     Route: 051
     Dates: end: 20110727
  3. BERIZYM [Concomitant]
     Route: 048
     Dates: end: 20110727
  4. LANSOPRAZOLE [Concomitant]
     Route: 048
     Dates: end: 20110727
  5. ARICEPT [Concomitant]
     Route: 048
     Dates: end: 20110727
  6. KERATINAMIN [Concomitant]
     Route: 051
     Dates: end: 20110727
  7. CLOPIDOGREL [Suspect]
     Indication: CORONARY ARTERY DISEASE
     Route: 048
     Dates: start: 20110726, end: 20110726
  8. MENEST [Concomitant]
     Route: 048
     Dates: end: 20110727
  9. LACTEC [Concomitant]
     Route: 042
     Dates: start: 20110726, end: 20110726
  10. DEPAS [Concomitant]
     Route: 048
     Dates: end: 20110727
  11. PLACEBO [Suspect]
     Indication: CORONARY ARTERY DISEASE
     Dosage: DAILY ONCE
     Route: 048
     Dates: start: 20110726
  12. SIGMART [Concomitant]
     Route: 042
     Dates: start: 20110726, end: 20110727
  13. ASPIRIN [Suspect]
     Indication: CORONARY ARTERY DISEASE
     Route: 048
  14. HEPARIN SODIUM [Suspect]
     Route: 042
     Dates: start: 20110726, end: 20110726
  15. ATARAX [Concomitant]
     Route: 042
     Dates: start: 20110726, end: 20110726
  16. CELESTAMINE TAB [Concomitant]
     Route: 048
     Dates: end: 20110726
  17. BUFFERIN [Concomitant]
     Indication: ANTIPLATELET THERAPY
     Route: 048
     Dates: start: 20110726, end: 20110726
  18. NITROGLYCERIN [Concomitant]
     Route: 060
     Dates: start: 20110726, end: 20110726

REACTIONS (2)
  - CEREBRAL HAEMORRHAGE [None]
  - THROMBOSIS IN DEVICE [None]
